FAERS Safety Report 5463650-X (Version None)
Quarter: 2007Q3

REPORT INFORMATION
  Report Type: 
  Country: None (occurrence: None)
  Receive Date: 20070920
  Receipt Date: 20070911
  Transmission Date: 20080115
  Serious: Yes (Hospitalization)
  Sender: FDA-Public Use
  Company Number: JP-ABBOTT-07P-087-0375423-00

PATIENT
  Age: 56 Year
  Sex: Male

DRUGS (5)
  1. CLARITHROMYCIN [Suspect]
     Indication: DRUG USE FOR UNKNOWN INDICATION
     Route: 048
  2. CLARITHROMYCIN [Suspect]
  3. TAKEPRON OD TABLETS [Suspect]
     Indication: GASTRIC ULCER
     Route: 048
     Dates: end: 20070710
  4. TAKEPRON OD TABLETS [Suspect]
  5. AMOXICILLIN [Suspect]
     Indication: DRUG USE FOR UNKNOWN INDICATION
     Route: 048

REACTIONS (2)
  - BLOOD CREATINE PHOSPHOKINASE INCREASED [None]
  - OEDEMA PERIPHERAL [None]
